FAERS Safety Report 19798405 (Version 1)
Quarter: 2021Q3

REPORT INFORMATION
  Report Type: Spontaneous
  Country: JP (occurrence: JP)
  Receive Date: 20210906
  Receipt Date: 20210906
  Transmission Date: 20211014
  Serious: Yes (Hospitalization)
  Sender: FDA-Public Use
  Company Number: JP-ELI_LILLY_AND_COMPANY-JP202104003614

PATIENT
  Age: 76 Year
  Sex: Female
  Weight: 42 kg

DRUGS (8)
  1. VERZENIO [Suspect]
     Active Substance: ABEMACICLIB
     Indication: BREAST CANCER RECURRENT
     Dosage: 150 MG, BID
     Route: 048
     Dates: start: 20210302, end: 20210324
  2. LETROZOLE. [Concomitant]
     Active Substance: LETROZOLE
     Indication: BREAST CANCER RECURRENT
     Dosage: 2.5 MG, DAILY
     Route: 048
     Dates: start: 20210302, end: 20210405
  3. MIYA?BM [Concomitant]
     Active Substance: CLOSTRIDIUM BUTYRICUM SPORES STRAIN M-55
     Route: 048
  4. BETANIS [Concomitant]
     Active Substance: MIRABEGRON
     Route: 048
  5. ELDECALCITOL [Concomitant]
     Active Substance: ELDECALCITOL
     Route: 048
  6. TARLIGE [Concomitant]
     Active Substance: MIROGABALIN BESYLATE
     Route: 048
  7. LIMAPROST ALFADEX [Concomitant]
     Active Substance: LIMAPROST
     Route: 048
  8. TAKECAB [Concomitant]
     Active Substance: VONOPRAZAN FUMARATE
     Route: 048

REACTIONS (3)
  - Pneumonia bacterial [Recovering/Resolving]
  - Lymphangiosis carcinomatosa [Recovering/Resolving]
  - Interstitial lung disease [Recovering/Resolving]

NARRATIVE: CASE EVENT DATE: 20210317
